FAERS Safety Report 7711797-7 (Version None)
Quarter: 2011Q3

REPORT INFORMATION
  Report Type: 
  Country: None (occurrence: None)
  Receive Date: 20110826
  Receipt Date: 20110822
  Transmission Date: 20111222
  Serious: Yes (Life-Threatening, Hospitalization)
  Sender: FDA-Public Use
  Company Number: PT-TEVA-297473ISR

PATIENT
  Sex: Female
  Weight: 61 kg

DRUGS (3)
  1. ONDANSETRON [Concomitant]
     Indication: ANTIEMETIC SUPPORTIVE CARE
     Dosage: 16 MILLIGRAM;
     Route: 042
     Dates: start: 20110802
  2. FLUOROURACIL [Suspect]
     Indication: COLON NEOPLASM
     Dosage: 1200 MG/M2;
     Route: 042
     Dates: start: 20110802, end: 20110804
  3. OXALIPLATIN [Concomitant]
     Indication: COLON NEOPLASM
     Dosage: 85 MG/M2;
     Route: 042
     Dates: start: 20110802, end: 20110802

REACTIONS (4)
  - FATIGUE [None]
  - DEPRESSED LEVEL OF CONSCIOUSNESS [None]
  - ENCEPHALOPATHY [None]
  - COMA [None]
